FAERS Safety Report 8222114-0 (Version None)
Quarter: 2012Q1

REPORT INFORMATION
  Report Type: 
  Country: None (occurrence: None)
  Receive Date: 20120320
  Receipt Date: 20120229
  Transmission Date: 20120608
  Serious: Yes (Death, Hospitalization)
  Sender: FDA-Public Use
  Company Number: DE-AMGEN-DEUCT2011034458

PATIENT
  Age: 74 Year
  Sex: Female

DRUGS (15)
  1. BISO-PUREN [Concomitant]
     Dosage: 5 MG, 2X/DAY
  2. PREDNISOLONE [Concomitant]
     Dosage: 5 MG, 1X/DAY
  3. LEVOTHYROXINE SODIUM [Concomitant]
     Dosage: 50 UG, 1X/DAY
  4. HUMIRA [Suspect]
     Dosage: UNK
     Dates: start: 20061001, end: 20080101
  5. ASPIRIN [Concomitant]
     Dosage: 100 MG, 1X/DAY
  6. AMLODIPINE [Concomitant]
     Dosage: 5 MG, 2X/DAY
  7. PREDNISOLONE [Concomitant]
     Dosage: 5 MG, UNK
  8. LEVOTHYROXINE SODIUM [Concomitant]
     Dosage: 100 UG, 1X/DAY
  9. METAMIZOL                          /06276702/ [Concomitant]
     Dosage: 30 UNK, DROPS AS NEEDED
  10. METHOTREXATE SODIUM [Suspect]
     Dosage: 20 MG, WEEKLY
     Dates: start: 20070401, end: 20100701
  11. METHOTREXATE SODIUM [Suspect]
     Indication: PRODUCT USED FOR UNKNOWN INDICATION
     Dosage: 20 MG, WEEKLY
     Dates: start: 20070401, end: 20100701
  12. ENALAPRIL [Concomitant]
     Dosage: 5 MG, 2X/DAY
  13. METAMIZOL                          /06276702/ [Concomitant]
     Dosage: 30 UNK, DROPS AS NEEDED
  14. ETANERCEPT [Suspect]
     Indication: RHEUMATOID ARTHRITIS
     Dosage: 50 UNK, QWK
     Dates: start: 20080101, end: 20100629
  15. SIMVASTATIN [Concomitant]
     Dosage: 20 MG, 1X/DAY

REACTIONS (1)
  - COLON CANCER [None]
